FAERS Safety Report 4588916-7 (Version None)
Quarter: 2005Q1

REPORT INFORMATION
  Report Type: 
  Country: None (occurrence: None)
  Receive Date: 20050216
  Receipt Date: 20050128
  Transmission Date: 20050727
  Serious: Yes (Hospitalization)
  Sender: FDA-Public Use
  Company Number: US_0502111693

PATIENT
  Age: 69 Year
  Sex: Female
  Weight: 68 kg

DRUGS (4)
  1. FORTEO [Suspect]
     Indication: OSTEOPENIA
     Dosage: 20 UG DAY
     Dates: start: 20041001, end: 20041231
  2. ZOLOFT (SERTRALIINE HYDROCHLORIDE) [Concomitant]
  3. ASPIRIN [Concomitant]
  4. HORMONE REPLACEMENT THERAPY [Concomitant]

REACTIONS (4)
  - COLITIS ISCHAEMIC [None]
  - PHARMACEUTICAL PRODUCT COMPLAINT [None]
  - RECTAL HAEMORRHAGE [None]
  - VASCULAR INJURY [None]
